FAERS Safety Report 23449243 (Version 1)
Quarter: 2024Q1

REPORT INFORMATION
  Report Type: Spontaneous
  Country: FR (occurrence: FR)
  Receive Date: 20240129
  Receipt Date: 20240129
  Transmission Date: 20240410
  Serious: Yes (Other)
  Sender: FDA-Public Use
  Company Number: FR-AFSSAPS-PB2024000012

PATIENT
  Age: 89 Year
  Sex: Female
  Weight: 46.3 kg

DRUGS (5)
  1. AZITHROMYCIN ANHYDROUS [Suspect]
     Active Substance: AZITHROMYCIN ANHYDROUS
     Indication: Mycoplasma infection
     Dosage: 500 MILLIGRAM, DAILY
     Route: 048
     Dates: start: 20231230
  2. AZITHROMYCIN ANHYDROUS [Suspect]
     Active Substance: AZITHROMYCIN ANHYDROUS
     Dosage: 250 MILLIGRAM, DAILY
     Route: 048
     Dates: start: 20231231
  3. TEICOPLANIN [Suspect]
     Active Substance: TEICOPLANIN
     Indication: Pneumonia
     Dosage: 12 MG/KG EVERY 12 HOURS FOR 48 HOURS
     Route: 042
     Dates: start: 20231223, end: 20231225
  4. TEICOPLANIN [Suspect]
     Active Substance: TEICOPLANIN
     Indication: Urinary tract infection
     Dosage: INFUSION OF 50 ML OVER 30 MIN FOR 3 DAYS
     Route: 042
     Dates: start: 20231227
  5. PIPERACILLIN SODIUM\TAZOBACTAM SODIUM [Concomitant]
     Active Substance: PIPERACILLIN SODIUM\TAZOBACTAM SODIUM
     Indication: Product used for unknown indication
     Dosage: UNK
     Route: 065

REACTIONS (1)
  - Vascular purpura [Not Recovered/Not Resolved]

NARRATIVE: CASE EVENT DATE: 20240101
